FAERS Safety Report 13319625 (Version 1)
Quarter: 2017Q1

REPORT INFORMATION
  Report Type: Spontaneous
  Country: US (occurrence: US)
  Receive Date: 20170309
  Receipt Date: 20170309
  Transmission Date: 20170428
  Serious: Yes (Hospitalization)
  Sender: FDA-Public Use
  Company Number: None

PATIENT
  Age: 82 Year
  Sex: Male

DRUGS (23)
  1. NUPLAZID [Suspect]
     Active Substance: PIMAVANSERIN TARTRATE
     Indication: HALLUCINATION
     Route: 048
     Dates: start: 201610
  2. QUETIAPINE. [Concomitant]
     Active Substance: QUETIAPINE
  3. AMANTADINE [Concomitant]
     Active Substance: AMANTADINE
  4. CALCIUM ACETATE. [Concomitant]
     Active Substance: CALCIUM ACETATE
  5. FLOMAX [Concomitant]
     Active Substance: TAMSULOSIN HYDROCHLORIDE
  6. FUROSEMIDE. [Concomitant]
     Active Substance: FUROSEMIDE
  7. LOVASTATIN. [Concomitant]
     Active Substance: LOVASTATIN
  8. CARB/LEVO [Concomitant]
     Active Substance: CARBIDOPA\LEVODOPA
  9. ENDOCET [Concomitant]
     Active Substance: ACETAMINOPHEN\OXYCODONE HYDROCHLORIDE
  10. MIRALAX [Concomitant]
     Active Substance: POLYETHYLENE GLYCOL 3350
  11. GABAPENTIN. [Concomitant]
     Active Substance: GABAPENTIN
  12. CYMBALTA [Concomitant]
     Active Substance: DULOXETINE HYDROCHLORIDE
  13. POTASSIUM CHLORIDE. [Concomitant]
     Active Substance: POTASSIUM CHLORIDE
  14. PROPRANOLOL [Concomitant]
     Active Substance: PROPRANOLOL HYDROCHLORIDE
  15. NUPLAZID [Suspect]
     Active Substance: PIMAVANSERIN TARTRATE
     Indication: PARKINSON^S DISEASE
     Route: 048
     Dates: start: 201610
  16. ROPINROLE [Concomitant]
  17. DONEPEZIL. [Concomitant]
     Active Substance: DONEPEZIL
  18. PANTOPROZOLE [Concomitant]
  19. COMTAN [Concomitant]
     Active Substance: ENTACAPONE
  20. AVODART [Concomitant]
     Active Substance: DUTASTERIDE
  21. CLARITIN [Concomitant]
     Active Substance: LORATADINE
  22. MULTIVIT [Concomitant]
     Active Substance: VITAMINS
  23. DIAZEPAM. [Concomitant]
     Active Substance: DIAZEPAM

REACTIONS (1)
  - Pneumonia [None]

NARRATIVE: CASE EVENT DATE: 201702
